FAERS Safety Report 7517542-2 (Version None)
Quarter: 2011Q2

REPORT INFORMATION
  Report Type: 
  Country: None (occurrence: None)
  Receive Date: 20110601
  Receipt Date: 20110518
  Transmission Date: 20111010
  Serious: No
  Sender: FDA-Public Use
  Company Number: US-ELI_LILLY_AND_COMPANY-US201010006027

PATIENT
  Sex: Female
  Weight: 58 kg

DRUGS (12)
  1. FORTEO [Suspect]
     Dosage: 20 UG, QD
     Dates: start: 20110301
  2. CYMBALTA [Concomitant]
  3. LEVOTHYROXINE SODIUM [Concomitant]
  4. FORTEO [Suspect]
     Indication: OSTEOPOROSIS
     Dosage: 20 UG, DAILY (1/D)
  5. WELCHOL [Concomitant]
  6. FORTEO [Suspect]
     Dosage: 20 UG, DAILY (1/D)
  7. FORTEO [Suspect]
     Dosage: 20 UG, DAILY (1/D)
     Route: 065
     Dates: end: 20110201
  8. SEROQUEL [Concomitant]
  9. VITAMIN D [Concomitant]
  10. TOPAMAX [Concomitant]
  11. EVAMIST [Concomitant]
  12. SYMBICORT [Concomitant]

REACTIONS (5)
  - INJECTION SITE HAEMATOMA [None]
  - INJECTION SITE PAIN [None]
  - CONTUSION [None]
  - HEART RATE INCREASED [None]
  - MUSCLE SPASMS [None]
